FAERS Safety Report 4480520-4 (Version None)
Quarter: 2004Q4

REPORT INFORMATION
  Report Type: 
  Country: None (occurrence: None)
  Receive Date: 20041019
  Receipt Date: 20041007
  Transmission Date: 20050328
  Serious: Yes (Life-Threatening, Hospitalization)
  Sender: FDA-Public Use
  Company Number: DE-2004-032717

PATIENT
  Age: 67 Year
  Sex: Male
  Weight: 80 kg

DRUGS (1)
  1. ULTRAVIST 370 [Suspect]
     Indication: UROGRAPHY
     Dosage: 50 ML, 1 DOSE, INTRAVENOUS
     Route: 042
     Dates: start: 20040908

REACTIONS (9)
  - BLOOD PRESSURE DECREASED [None]
  - BURNING SENSATION [None]
  - CARDIOVASCULAR DISORDER [None]
  - CIRCULATORY COLLAPSE [None]
  - ERYTHEMA [None]
  - FEELING HOT [None]
  - HAEMATURIA [None]
  - HEAT RASH [None]
  - LOSS OF CONSCIOUSNESS [None]
